FAERS Safety Report 7770184-6 (Version None)
Quarter: 2011Q3

REPORT INFORMATION
  Report Type: 
  Country: None (occurrence: None)
  Receive Date: 20110922
  Receipt Date: 20101122
  Transmission Date: 20111222
  Serious: No
  Sender: FDA-Public Use
  Company Number: US-ASTRAZENECA-2009SE17792

PATIENT
  Sex: Male

DRUGS (1)
  1. SEROQUEL XR [Suspect]
     Route: 048
     Dates: start: 20010101

REACTIONS (3)
  - OROPHARYNGEAL PAIN [None]
  - GASTRIC ULCER [None]
  - MUSCULAR WEAKNESS [None]
